FAERS Safety Report 5214854-2 (Version None)
Quarter: 2006Q4

REPORT INFORMATION
  Report Type: 
  Country: None (occurrence: None)
  Receive Date: 20061107
  Receipt Date: 20060608
  Transmission Date: 20070319
  Serious: No
  Sender: FDA-Public Use
  Company Number: 200614006BWH

PATIENT
  Age: 54 Year
  Sex: Male

DRUGS (2)
  1. LEVITRA [Suspect]
     Indication: DRUG USE FOR UNKNOWN INDICATION
     Dosage: 20 MG, ONCE, ORAL;
     Route: 048
  2. LEVITRA [Suspect]
     Dosage: 20 MG, ONCE,ORAL; A FEW YEARS
     Route: 048

REACTIONS (1)
  - DRUG INEFFECTIVE [None]
